FAERS Safety Report 25469386 (Version 2)
Quarter: 2025Q3

REPORT INFORMATION
  Report Type: Spontaneous
  Country: EU (occurrence: EU)
  Receive Date: 20250623
  Receipt Date: 20250707
  Transmission Date: 20251021
  Serious: Yes (Hospitalization, Other)
  Sender: MYLAN
  Company Number: EU-SA-2025SA159519

PATIENT
  Age: 84 Year
  Sex: Male

DRUGS (1)
  1. AMIODARONE [Suspect]
     Active Substance: AMIODARONE
     Indication: Atrial fibrillation

REACTIONS (14)
  - Myxoedema [Recovering/Resolving]
  - Oedema peripheral [Recovering/Resolving]
  - Face oedema [Recovering/Resolving]
  - Fatigue [Recovering/Resolving]
  - Chest pain [Recovering/Resolving]
  - Bradyphrenia [Recovering/Resolving]
  - Periorbital oedema [Recovering/Resolving]
  - Oedema [Recovering/Resolving]
  - Eyelid ptosis [Recovering/Resolving]
  - Obesity [Recovering/Resolving]
  - Anaemia macrocytic [Recovering/Resolving]
  - Alopecia [Recovering/Resolving]
  - Hypothyroidism [Recovering/Resolving]
  - Sinus bradycardia [Recovering/Resolving]
